FAERS Safety Report 4488837-4 (Version None)
Quarter: 2004Q4

REPORT INFORMATION
  Report Type: 
  Country: None (occurrence: None)
  Receive Date: 20041029
  Receipt Date: 20041020
  Transmission Date: 20050328
  Serious: Yes (Disabling)
  Sender: FDA-Public Use
  Company Number: CH-MERCK-0410CHE00042

PATIENT
  Age: 61 Year
  Sex: Female

DRUGS (1)
  1. VIOXX [Suspect]
     Indication: OSTEOARTHRITIS
     Route: 048
     Dates: start: 20000101

REACTIONS (2)
  - RETINAL VEIN THROMBOSIS [None]
  - THROMBOSIS [None]
